FAERS Safety Report 16632490 (Version 1)
Quarter: 2019Q3

REPORT INFORMATION
  Report Type: Spontaneous
  Country: US (occurrence: US)
  Receive Date: 20190725
  Receipt Date: 20190725
  Transmission Date: 20191004
  Serious: No
  Sender: FDA-Public Use
  Company Number: US-ABBVIE-18S-163-2466231-00

PATIENT
  Age: 76 Year
  Sex: Female

DRUGS (3)
  1. TIROSINT [Suspect]
     Active Substance: LEVOTHYROXINE SODIUM
     Indication: HYPOTHYROIDISM
     Route: 048
     Dates: start: 2008, end: 201803
  2. TIROSINT [Suspect]
     Active Substance: LEVOTHYROXINE SODIUM
     Dosage: ONE 125 MCG CAPSULE SIX DAYS PER WEEK AND ONE 137 MCG CAPSULE ONE DAY PER WEEK
     Route: 048
     Dates: start: 201803
  3. LEVOTHYROXINE. [Suspect]
     Active Substance: LEVOTHYROXINE
     Indication: PRODUCT USED FOR UNKNOWN INDICATION
     Route: 048

REACTIONS (3)
  - Drug level below therapeutic [Unknown]
  - Thyroid function test abnormal [Unknown]
  - Malabsorption [Unknown]

NARRATIVE: CASE EVENT DATE: 2018
